FAERS Safety Report 5015054-1 (Version None)
Quarter: 2006Q2

REPORT INFORMATION
  Report Type: 
  Country: None (occurrence: None)
  Receive Date: 20060530
  Receipt Date: 20060522
  Transmission Date: 20061013
  Serious: Yes (Hospitalization)
  Sender: FDA-Public Use
  Company Number: E2090-00009-SPO-JP

PATIENT
  Age: 38 Year
  Sex: Female

DRUGS (6)
  1. ZONISAMIDE [Suspect]
     Indication: EPILEPSY
     Dosage: 100 MG, ORAL
     Route: 048
     Dates: start: 20060301, end: 20060427
  2. FAMOTIDINE [Concomitant]
  3. MUCOSTA (REBAMIPIDE) [Concomitant]
  4. BUFFERIN [Concomitant]
  5. CEFDINIR [Concomitant]
  6. ALLELOCK (OLOPATADINE HYDROCHLORIDE) [Concomitant]

REACTIONS (7)
  - ALANINE AMINOTRANSFERASE INCREASED [None]
  - ASPARTATE AMINOTRANSFERASE INCREASED [None]
  - GAMMA-GLUTAMYLTRANSFERASE INCREASED [None]
  - HEPATIC FUNCTION ABNORMAL [None]
  - HYPERSENSITIVITY [None]
  - RASH [None]
  - VIRAL INFECTION [None]
